FAERS Safety Report 10906692 (Version 1)
Quarter: 2015Q1

REPORT INFORMATION
  Report Type: Spontaneous
  Country: AR (occurrence: None)
  Receive Date: 20150309
  Receipt Date: 20150309
  Transmission Date: 20150721
  Serious: Yes (Disabling)
  Sender: FDA-Public Use
  Company Number: None

PATIENT
  Age: 30 Year
  Sex: Female
  Weight: 55 kg

DRUGS (1)
  1. MIRVASO [Suspect]
     Active Substance: BRIMONIDINE TARTRATE
     Indication: FLUSHING
     Dosage: 1 LITTLE DROP PER DAY  ONCE DAILY  APPLIED TO A SURFACE, USUALLY THE SKIN
     Route: 061
     Dates: start: 20150304, end: 20150306

REACTIONS (6)
  - Erythema [None]
  - Scratch [None]
  - Facial pain [None]
  - Impaired work ability [None]
  - Swelling [None]
  - Headache [None]

NARRATIVE: CASE EVENT DATE: 20150306
